FAERS Safety Report 7197982-4 (Version None)
Quarter: 2010Q4

REPORT INFORMATION
  Report Type: 
  Country: None (occurrence: None)
  Receive Date: 20101227
  Receipt Date: 20101216
  Transmission Date: 20110411
  Serious: Yes (Hospitalization)
  Sender: FDA-Public Use
  Company Number: US-ROCHE-748967

PATIENT
  Sex: Female
  Weight: 122 kg

DRUGS (8)
  1. CELLCEPT [Suspect]
     Route: 065
  2. REBIF [Suspect]
     Route: 058
     Dates: start: 20080605
  3. AVAPRO [Concomitant]
     Dates: end: 20090601
  4. ATENOLOL [Concomitant]
     Dates: end: 20090601
  5. COUMADIN [Concomitant]
  6. SYNTHROID [Concomitant]
     Indication: HYPOTHYROIDISM
  7. NEURONTIN [Concomitant]
  8. INSULIN [Concomitant]
     Dates: start: 20070101

REACTIONS (9)
  - BACTERAEMIA [None]
  - CELLULITIS [None]
  - DEMYELINATION [None]
  - EAR INFECTION [None]
  - GAIT DISTURBANCE [None]
  - HYPOAESTHESIA [None]
  - NEUROPATHY PERIPHERAL [None]
  - PARAESTHESIA [None]
  - RENAL FAILURE [None]
